FAERS Safety Report 8313041-9 (Version None)
Quarter: 2012Q2

REPORT INFORMATION
  Report Type: 
  Country: None (occurrence: None)
  Receive Date: 20120424
  Receipt Date: 20120412
  Transmission Date: 20120825
  Serious: Yes (Other)
  Sender: FDA-Public Use
  Company Number: 217202

PATIENT
  Age: 73 Year
  Sex: Female
  Weight: 66 kg

DRUGS (3)
  1. INNOHEP [Suspect]
     Indication: PRODUCT USED FOR UNKNOWN INDICATION
     Dosage: 2500 IU,INTRAVENOUS
     Route: 042
     Dates: start: 20120224, end: 20120309
  2. LIDOCAINE [Concomitant]
  3. VENOFER (SACCHARATE IRON OXIDE) [Concomitant]

REACTIONS (6)
  - AGITATION [None]
  - MUSCLE TIGHTNESS [None]
  - INCORRECT DRUG ADMINISTRATION DURATION [None]
  - RESTLESSNESS [None]
  - DISCOMFORT [None]
  - FEELING ABNORMAL [None]
